FAERS Safety Report 9847004 (Version 2)
Quarter: 2014Q1

REPORT INFORMATION
  Report Type: Spontaneous
  Country: US (occurrence: US)
  Receive Date: 20140127
  Receipt Date: 20140305
  Transmission Date: 20141002
  Serious: No
  Sender: FDA-Public Use
  Company Number: US-TEVA-455129USA

PATIENT
  Sex: Female

DRUGS (6)
  1. NUVIGIL [Suspect]
  2. SYNTHROID [Concomitant]
  3. CYTONEL [Concomitant]
  4. ESTROGEN CREAM [Concomitant]
     Dosage: 1.2 MG/GM
  5. TESTOSTERONE [Concomitant]
  6. PROGESTERONE [Concomitant]

REACTIONS (1)
  - Therapeutic response unexpected [Unknown]
